FAERS Safety Report 8820772 (Version 2)
Quarter: 2012Q4

REPORT INFORMATION
  Report Type: 
  Country: ZA (occurrence: ZA)
  Receive Date: 20121002
  Receipt Date: 20121011
  Transmission Date: 20130627
  Serious: Yes (Hospitalization)
  Sender: FDA-Public Use
  Company Number: ZA-ROCHE-1139992

PATIENT
  Age: 34 Year
  Sex: Female
  Weight: 70 kg

DRUGS (2)
  1. XELODA [Suspect]
     Indication: COLON CANCER
     Route: 065
     Dates: start: 20120620
  2. OXALIPLATIN [Concomitant]
     Route: 042

REACTIONS (2)
  - Ileitis [Not Recovered/Not Resolved]
  - Diarrhoea [Recovered/Resolved]
